FAERS Safety Report 7638761-0 (Version None)
Quarter: 2011Q3

REPORT INFORMATION
  Report Type: 
  Country: None (occurrence: None)
  Receive Date: 20110720
  Receipt Date: 20110705
  Transmission Date: 20111222
  Serious: Yes (Other)
  Sender: FDA-Public Use
  Company Number: 2011AP001407

PATIENT
  Age: 69 Year
  Sex: Male

DRUGS (2)
  1. ASPIRIN [Concomitant]
  2. DONEPEZIL HCL [Suspect]
     Indication: DEMENTIA ALZHEIMER'S TYPE
     Dosage: 10 MG, PO
     Route: 048
     Dates: start: 20101202, end: 20110617

REACTIONS (5)
  - ABDOMINAL PAIN UPPER [None]
  - HYPOTENSION [None]
  - BRADYCARDIA [None]
  - FEELING ABNORMAL [None]
  - DIZZINESS [None]
